FAERS Safety Report 6552685-1 (Version None)
Quarter: 2010Q1

REPORT INFORMATION
  Report Type: 
  Country: None (occurrence: None)
  Receive Date: 20100126
  Receipt Date: 20100120
  Transmission Date: 20100710
  Serious: Yes (Other)
  Sender: FDA-Public Use
  Company Number: B0628408A

PATIENT
  Age: 81 Year
  Sex: Male

DRUGS (2)
  1. AVOLVE [Suspect]
     Indication: DRUG USE FOR UNKNOWN INDICATION
     Route: 048
  2. SILODOSIN [Concomitant]
     Route: 048

REACTIONS (1)
  - CARDIAC FAILURE [None]
